FAERS Safety Report 13061082 (Version 2)
Quarter: 2017Q1

REPORT INFORMATION
  Report Type: Spontaneous
  Country: IT (occurrence: IT)
  Receive Date: 20161226
  Receipt Date: 20170116
  Transmission Date: 20170428
  Serious: Yes (Hospitalization)
  Sender: FDA-Public Use
  Company Number: IT-ROCHE-1871501

PATIENT
  Age: 50 Year
  Sex: Female

DRUGS (1)
  1. ROCEFIN [Suspect]
     Active Substance: CEFTRIAXONE SODIUM
     Indication: BRONCHITIS
     Dosage: TOTAL
     Route: 065
     Dates: start: 20141205, end: 20141205

REACTIONS (6)
  - Oedema peripheral [Recovering/Resolving]
  - Lip oedema [Recovering/Resolving]
  - Generalised oedema [Recovering/Resolving]
  - Throat tightness [Recovering/Resolving]
  - Pruritus generalised [Recovering/Resolving]
  - Dyspnoea [Recovering/Resolving]

NARRATIVE: CASE EVENT DATE: 20141205
